FAERS Safety Report 12069692 (Version 2)
Quarter: 2016Q3

REPORT INFORMATION
  Report Type: Spontaneous
  Country: US (occurrence: US)
  Receive Date: 20160211
  Receipt Date: 20160808
  Transmission Date: 20161109
  Serious: No
  Sender: FDA-Public Use
  Company Number: US-PFIZER INC-2016073188

PATIENT
  Age: 54 Year
  Sex: Female
  Weight: 54 kg

DRUGS (1)
  1. GABAPENTIN. [Suspect]
     Active Substance: GABAPENTIN
     Dosage: UNK, 4X/DAY

REACTIONS (1)
  - Breakthrough pain [Unknown]
